FAERS Safety Report 17279060 (Version 1)
Quarter: 2020Q1

REPORT INFORMATION
  Report Type: Report from Study
  Country: EG (occurrence: EG)
  Receive Date: 20200116
  Receipt Date: 20200116
  Transmission Date: 20200409
  Serious: Yes (Hospitalization, Disabling, Other)
  Sender: FDA-Public Use
  Company Number: PHHY2019EG013495

PATIENT
  Age: 48 Year
  Sex: Female

DRUGS (1)
  1. GLIVEC [Suspect]
     Active Substance: IMATINIB MESYLATE
     Indication: CHRONIC MYELOID LEUKAEMIA
     Dosage: 400 MG/DAY
     Route: 048
     Dates: start: 201711

REACTIONS (28)
  - Pain [Recovering/Resolving]
  - Weight decreased [Recovered/Resolved]
  - Influenza [Recovering/Resolving]
  - Chills [Not Recovered/Not Resolved]
  - Decreased immune responsiveness [Not Recovered/Not Resolved]
  - Bone pain [Unknown]
  - Insomnia [Recovering/Resolving]
  - Headache [Not Recovered/Not Resolved]
  - Pyrexia [Recovering/Resolving]
  - Cough [Recovering/Resolving]
  - Hair texture abnormal [Not Recovered/Not Resolved]
  - Syncope [Recovering/Resolving]
  - Dizziness [Not Recovered/Not Resolved]
  - Vomiting [Recovering/Resolving]
  - Anaemia [Not Recovered/Not Resolved]
  - Sinusitis [Not Recovered/Not Resolved]
  - Fatigue [Not Recovered/Not Resolved]
  - Heart rate increased [Not Recovered/Not Resolved]
  - Sneezing [Recovering/Resolving]
  - Rhinitis [Recovering/Resolving]
  - Neuritis [Recovering/Resolving]
  - Abdominal pain upper [Not Recovered/Not Resolved]
  - Haemoglobin decreased [Not Recovered/Not Resolved]
  - Menstruation irregular [Not Recovered/Not Resolved]
  - Dysstasia [Recovered/Resolved]
  - Feeling cold [Not Recovered/Not Resolved]
  - Dry skin [Not Recovered/Not Resolved]
  - Drug ineffective [Not Recovered/Not Resolved]

NARRATIVE: CASE EVENT DATE: 201711
